FAERS Safety Report 5515755-2 (Version None)
Quarter: 2007Q4

REPORT INFORMATION
  Report Type: 
  Country: None (occurrence: None)
  Receive Date: 20071114
  Receipt Date: 20071106
  Transmission Date: 20080405
  Serious: Yes (Other)
  Sender: FDA-Public Use
  Company Number: PHNU2007DE03686

PATIENT
  Age: 68 Year
  Sex: Female
  Weight: 76 kg

DRUGS (8)
  1. ZOMETA [Suspect]
     Indication: METASTASES TO BONE
     Dosage: 4 MG, QMO
     Route: 042
     Dates: start: 20060119
  2. TAXOTERE [Concomitant]
     Indication: BREAST CANCER
     Dates: start: 20060201, end: 20060517
  3. DOXORUBICIN HCL [Concomitant]
     Indication: BREAST CANCER
     Dates: start: 20060201, end: 20060517
  4. FEMARA [Suspect]
     Indication: BREAST CANCER
     Dosage: 2.5 MG, QD
     Route: 048
     Dates: start: 20060601
  5. CALCIUM [Concomitant]
     Dates: start: 20060119
  6. VITAMIN D3 [Concomitant]
     Dates: start: 20060119
  7. IBUPROFEN [Concomitant]
     Dates: start: 20060119
  8. GRANOCYTE [Concomitant]
     Indication: LEUKOPENIA
     Route: 058

REACTIONS (7)
  - BONE DENSITOMETRY [None]
  - DIARRHOEA [None]
  - ERYSIPELOID [None]
  - LEUKOPENIA [None]
  - OSTEOPOROSIS [None]
  - PARAESTHESIA [None]
  - PELVIC FRACTURE [None]
